FAERS Safety Report 8803069 (Version 1)
Quarter: 2012Q4

REPORT INFORMATION
  Report Type: 
  Country: JP (occurrence: JP)
  Receive Date: 20120924
  Receipt Date: 20120924
  Transmission Date: 20130627
  Serious: Yes (Other)
  Sender: FDA-Public Use
  Company Number: JP-ASTRAZENECA-2012SE72154

PATIENT
  Age: 50 Year
  Sex: Male

DRUGS (12)
  1. XYLOCAINE INJECTION [Suspect]
     Indication: LOCAL ANAESTHESIA
     Route: 061
     Dates: start: 20120829
  2. POTACOL-R [Concomitant]
     Route: 041
     Dates: start: 20120829
  3. OPALMON [Concomitant]
     Route: 048
  4. WYPAX [Concomitant]
     Route: 048
  5. CONIEL [Concomitant]
     Route: 048
  6. YODEL-S [Concomitant]
     Route: 048
  7. ROHYPNOL [Concomitant]
     Route: 048
  8. REFLEX [Concomitant]
     Route: 048
  9. BENZALIN [Concomitant]
     Route: 048
  10. GASTER [Concomitant]
     Route: 048
  11. ZYLORIC [Concomitant]
     Route: 048
  12. VESICARE [Concomitant]
     Route: 048

REACTIONS (1)
  - Shock [Recovered/Resolved]
